FAERS Safety Report 21144720 (Version 1)
Quarter: 2022Q3

REPORT INFORMATION
  Report Type: Spontaneous
  Country: DE (occurrence: DE)
  Receive Date: 20220728
  Receipt Date: 20220728
  Transmission Date: 20221027
  Serious: Yes (Other)
  Sender: FDA-Public Use
  Company Number: DE-ROCHE-2395797

PATIENT
  Age: 50 Year
  Sex: Female

DRUGS (13)
  1. DEXAMETHASONE [Suspect]
     Active Substance: DEXAMETHASONE
     Indication: Diffuse large B-cell lymphoma
     Dosage: 1ST LINE, R-CHOP 4 CYCLES
     Route: 065
     Dates: start: 201811, end: 201901
  2. THALIDOMIDE [Suspect]
     Active Substance: THALIDOMIDE
     Indication: Diffuse large B-cell lymphoma
     Dosage: 1ST LINE, R-CHOP 4 CYCLES
     Route: 065
     Dates: start: 201811, end: 201901
  3. CYCLOPHOSPHAMIDE [Suspect]
     Active Substance: CYCLOPHOSPHAMIDE
     Indication: Diffuse large B-cell lymphoma
     Dosage: 1ST LINE, R-CHOP 4 CYCLES
     Route: 065
     Dates: start: 201811, end: 201901
  4. BENDAMUSTINE [Suspect]
     Active Substance: BENDAMUSTINE
     Indication: Diffuse large B-cell lymphoma
     Dosage: 1ST LINE, R-CHOP 4 CYCLES
     Route: 065
     Dates: start: 201811, end: 201901
  5. METHOTREXATE [Suspect]
     Active Substance: METHOTREXATE
     Indication: Diffuse large B-cell lymphoma
     Dosage: 1ST LINE, R-CHOP 4 CYCLES
     Route: 065
     Dates: start: 201811, end: 201901
  6. AZATHIOPRINE [Suspect]
     Active Substance: AZATHIOPRINE
     Indication: Diffuse large B-cell lymphoma
     Dosage: 1ST LINE, R-CHOP 4 CYCLES
     Route: 065
     Dates: start: 201811, end: 201901
  7. RITUXIMAB [Suspect]
     Active Substance: RITUXIMAB
     Indication: Diffuse large B-cell lymphoma
     Dosage: FURTHER LINE, R-ICE 1 CYCLE
     Route: 065
     Dates: start: 201905, end: 201905
  8. RITUXIMAB [Suspect]
     Active Substance: RITUXIMAB
     Dosage: 2ND LINE, LOCAL RADIOTHERAPY 40 GY
     Route: 065
     Dates: start: 201902, end: 201903
  9. RITUXIMAB [Suspect]
     Active Substance: RITUXIMAB
     Dosage: FURTHER LINE, R-DHAP 1 CYCLE
     Route: 065
     Dates: start: 201904, end: 201904
  10. RITUXIMAB [Suspect]
     Active Substance: RITUXIMAB
     Dosage: 1ST LINE, R-CHOP 4 CYCLES
     Route: 065
     Dates: start: 201811, end: 201901
  11. VINCRISTINE [Suspect]
     Active Substance: VINCRISTINE
     Indication: Diffuse large B-cell lymphoma
     Dosage: 1ST LINE, R-CHOP 4 CYCLES
     Route: 065
     Dates: start: 201811, end: 201901
  12. PREDNISOLONE [Suspect]
     Active Substance: PREDNISOLONE
     Indication: Diffuse large B-cell lymphoma
     Dosage: 1ST LINE, R-CHOP 4 CYCLES
     Route: 065
     Dates: start: 201811, end: 201901
  13. DOXORUBICIN [Suspect]
     Active Substance: DOXORUBICIN
     Indication: Diffuse large B-cell lymphoma
     Dosage: 1ST LINE, R-CHOP 4 CYCLES
     Route: 065
     Dates: start: 201811, end: 201901

REACTIONS (5)
  - Acquired thalassaemia [Unknown]
  - Haemoglobin decreased [Unknown]
  - Platelet count increased [Unknown]
  - Malignant neoplasm progression [Unknown]
  - Intentional product use issue [Unknown]

NARRATIVE: CASE EVENT DATE: 20190606
